FAERS Safety Report 21068862 (Version 1)
Quarter: 2022Q3

REPORT INFORMATION
  Report Type: Spontaneous
  Country: FR (occurrence: FR)
  Receive Date: 20220712
  Receipt Date: 20220712
  Transmission Date: 20221027
  Serious: Yes (Hospitalization)
  Sender: FDA-Public Use
  Company Number: None

PATIENT
  Age: 76 Year
  Sex: Male

DRUGS (2)
  1. BISOPROLOL [Interacting]
     Active Substance: BISOPROLOL
     Indication: Arrhythmia
     Dosage: 3.75 MILLIGRAM, QD (3.75MG PER DAY)
     Route: 048
  2. SOTORASIB [Interacting]
     Active Substance: SOTORASIB
     Indication: Lung adenocarcinoma
     Dosage: 480 MILLIGRAM, QD (480MG PER DAY)
     Route: 048
     Dates: start: 20220528

REACTIONS (2)
  - Drug interaction [Not Recovered/Not Resolved]
  - Tachycardia [Not Recovered/Not Resolved]

NARRATIVE: CASE EVENT DATE: 20220531
